FAERS Safety Report 4601855-8 (Version None)
Quarter: 2005Q1

REPORT INFORMATION
  Report Type: 
  Country: None (occurrence: None)
  Receive Date: 20050131
  Receipt Date: 20041208
  Transmission Date: 20050727
  Serious: No
  Sender: FDA-Public Use
  Company Number: 200419433US

PATIENT
  Age: 58 Year
  Sex: Female
  Weight: 68 kg

DRUGS (4)
  1. TELITHROMYCIN (KETEK) TABLETS [Suspect]
     Indication: BRONCHITIS
     Dosage: TWO 400 MG TABLETS MD QD
     Dates: start: 20041101, end: 20041101
  2. NICOTINIC AND ACID (NIASPAN) [Concomitant]
  3. FLUVASTATIN SODIUM [Concomitant]
  4. FOSINOPRIL SODIUM (MONOPRIL COTINUEE) [Concomitant]

REACTIONS (2)
  - DYSGEUSIA [None]
  - PALPITATIONS [None]
